FAERS Safety Report 18459077 (Version 2)
Quarter: 2021Q1

REPORT INFORMATION
  Report Type: Report from Study
  Country: CA (occurrence: CA)
  Receive Date: 20201103
  Receipt Date: 20210316
  Transmission Date: 20210419
  Serious: Yes (Other)
  Sender: FDA-Public Use
  Company Number: PHHY2017CA174324

PATIENT
  Age: 30 Year
  Sex: Male

DRUGS (8)
  1. COSENTYX [Suspect]
     Active Substance: SECUKINUMAB
     Indication: PSORIATIC ARTHROPATHY
     Dosage: 150 MG, QMO
     Route: 058
     Dates: start: 20170906, end: 20171104
  2. PREDNISONE. [Concomitant]
     Active Substance: PREDNISONE
     Indication: PRODUCT USED FOR UNKNOWN INDICATION
     Dosage: UNK UNK, QD
     Route: 065
  3. IBUPROFEN. [Concomitant]
     Active Substance: IBUPROFEN
     Indication: PRODUCT USED FOR UNKNOWN INDICATION
     Dosage: UNK UNK, TID
     Route: 065
     Dates: start: 201911, end: 202010
  4. COSENTYX [Suspect]
     Active Substance: SECUKINUMAB
     Indication: ANKYLOSING SPONDYLITIS
     Dosage: 150 MG, QMO
     Route: 058
     Dates: start: 20181016, end: 20191128
  5. TYLENOL ARTHRITIS PAIN [Concomitant]
     Active Substance: ACETAMINOPHEN
     Indication: PRODUCT USED FOR UNKNOWN INDICATION
     Dosage: UNK
     Route: 065
  6. METHOTREXATE. [Suspect]
     Active Substance: METHOTREXATE
     Indication: PRODUCT USED FOR UNKNOWN INDICATION
     Dosage: UNK UNK, QW
     Route: 058
     Dates: start: 201602, end: 201911
  7. NAPROXEN. [Concomitant]
     Active Substance: NAPROXEN
     Indication: PRODUCT USED FOR UNKNOWN INDICATION
     Dosage: UNK UNK, BID
     Route: 065
     Dates: start: 201612, end: 201708
  8. COSENTYX [Suspect]
     Active Substance: SECUKINUMAB
     Indication: PSORIASIS
     Dosage: 150 MG, QMO
     Route: 058
     Dates: start: 20180116

REACTIONS (14)
  - Psoriatic arthropathy [Unknown]
  - Sacroiliitis [Unknown]
  - Mouth ulceration [Unknown]
  - Arthralgia [Not Recovered/Not Resolved]
  - Dactylitis [Unknown]
  - Oral pain [Recovering/Resolving]
  - Drug intolerance [Unknown]
  - Speech disorder [Unknown]
  - Tendonitis [Unknown]
  - Inappropriate schedule of product administration [Unknown]
  - Drug ineffective [Unknown]
  - Behcet^s syndrome [Unknown]
  - Spondyloarthropathy [Unknown]
  - Joint swelling [Unknown]

NARRATIVE: CASE EVENT DATE: 20170906
